FAERS Safety Report 25820209 (Version 1)
Quarter: 2025Q3

REPORT INFORMATION
  Report Type: Spontaneous
  Country: US (occurrence: US)
  Receive Date: 20250919
  Receipt Date: 20250919
  Transmission Date: 20251021
  Serious: No
  Sender: SANOFI AVENTIS
  Company Number: US-SA-2025SA278987

PATIENT
  Age: 55 Year
  Sex: Female

DRUGS (3)
  1. DUPIXENT [Suspect]
     Active Substance: DUPILUMAB
     Route: 058
     Dates: start: 20250901, end: 20250901
  2. DUPIXENT [Suspect]
     Active Substance: DUPILUMAB
     Route: 058
     Dates: start: 20250904, end: 20250904
  3. DUPIXENT [Suspect]
     Active Substance: DUPILUMAB
     Dosage: UNK UNK, QOW
     Route: 058
     Dates: start: 202509

REACTIONS (1)
  - Incorrect dose administered [Unknown]

NARRATIVE: CASE EVENT DATE: 20250901
